FAERS Safety Report 6742718-1 (Version None)
Quarter: 2010Q2

REPORT INFORMATION
  Report Type: 
  Country: None (occurrence: None)
  Receive Date: 20100526
  Receipt Date: 20091221
  Transmission Date: 20101027
  Serious: No
  Sender: FDA-Public Use
  Company Number: US-ABBOTT-09P-163-0616160-00

PATIENT
  Age: 63 Year
  Sex: Male
  Weight: 106.69 kg

DRUGS (1)
  1. ZEMPLAR [Suspect]
     Indication: HYPERPARATHYROIDISM
     Route: 048
     Dates: start: 20090922, end: 20091117

REACTIONS (4)
  - DYSPNOEA [None]
  - LYMPHOID TISSUE HYPERPLASIA [None]
  - PRURITUS [None]
  - SKIN NODULE [None]
